FAERS Safety Report 9086246 (Version 2)
Quarter: 2013Q1

REPORT INFORMATION
  Report Type: Spontaneous
  Country: IT (occurrence: IT)
  Receive Date: 20130131
  Receipt Date: 20130306
  Transmission Date: 20140127
  Serious: Yes (Other)
  Sender: FDA-Public Use
  Company Number: IT-ELI_LILLY_AND_COMPANY-IT201301006650

PATIENT
  Age: 83 Year
  Sex: Male

DRUGS (8)
  1. HUMALOG LISPRO [Suspect]
     Indication: TYPE 1 DIABETES MELLITUS
     Dosage: 36 IU, QD
     Route: 058
     Dates: start: 20120116
  2. BISOPROLOL HEMIFUMARATE [Concomitant]
     Dosage: 5 MG, UNKNOWN
  3. LANSOX [Concomitant]
     Dosage: 30 MG, UNKNOWN
  4. TRITTICO [Concomitant]
     Dosage: 25 DF, UNKNOWN
     Route: 048
  5. LUVION [Concomitant]
     Dosage: 50 MG, UNKNOWN
  6. LASIX [Concomitant]
     Dosage: 25 MG, UNKNOWN
  7. PLAVIX [Concomitant]
     Dosage: 75 MG, UNKNOWN
  8. TORVAST [Concomitant]
     Dosage: 20 MG, UNKNOWN

REACTIONS (2)
  - Hyperglycaemia [Recovered/Resolved]
  - Urinary tract infection [Unknown]
